FAERS Safety Report 8901366 (Version 2)
Quarter: 2012Q4

REPORT INFORMATION
  Report Type: 
  Country: DE (occurrence: DE)
  Receive Date: 20121109
  Receipt Date: 20121212
  Transmission Date: 20130627
  Serious: Yes (Death, Life-Threatening, Hospitalization)
  Sender: FDA-Public Use
  Company Number: DE-B.I. PHARMACEUTICALS,INC./RIDGEFIELD-2012-DE-02646DE

PATIENT
  Age: 86 Year
  Sex: Male

DRUGS (4)
  1. PRADAXA [Suspect]
     Indication: ATRIAL FIBRILLATION
     Dosage: 110 NR
     Dates: start: 2010, end: 2012
  2. ATACANOL [Concomitant]
     Dosage: 16 mg
     Dates: end: 20121029
  3. METOPROLOL [Concomitant]
     Dosage: 47.5 mg
     Dates: end: 20121029
  4. TOREM [Concomitant]
     Dosage: 10 mg
     Dates: end: 20121029

REACTIONS (10)
  - Gastrointestinal haemorrhage [Fatal]
  - Melaena [Unknown]
  - General physical health deterioration [Unknown]
  - Melaena [Unknown]
  - Coagulopathy [Unknown]
  - Hypotension [Unknown]
  - Hypocalcaemia [Recovered/Resolved]
  - Pneumonia [Unknown]
  - Anaemia [Unknown]
  - Blood creatinine increased [Unknown]
